FAERS Safety Report 5807533-1 (Version None)
Quarter: 2008Q3

REPORT INFORMATION
  Report Type: 
  Country: None (occurrence: None)
  Receive Date: 20080711
  Receipt Date: 20071219
  Transmission Date: 20090109
  Serious: Yes (Hospitalization)
  Sender: FDA-Public Use
  Company Number: US-ROCHE-537728

PATIENT
  Age: 51 Year
  Sex: Male

DRUGS (4)
  1. RIBAVIRIN [Suspect]
     Route: 065
  2. INTRON A [Suspect]
     Route: 058
  3. CELECOXIB [Concomitant]
  4. TEMAZEPAM [Concomitant]
     Dosage: EACH NIGHT.

REACTIONS (1)
  - PANCREATITIS ACUTE [None]
